FAERS Safety Report 25569147 (Version 1)
Quarter: 2025Q3

REPORT INFORMATION
  Report Type: Spontaneous
  Country: US (occurrence: US)
  Receive Date: 20250716
  Receipt Date: 20250716
  Transmission Date: 20251021
  Serious: No
  Sender: BIOMARIN
  Company Number: US-BIOMARINAP-US-2025-166847

PATIENT
  Age: 10 Year
  Sex: Female
  Weight: 28.2 kg

DRUGS (1)
  1. VOXZOGO [Suspect]
     Active Substance: VOSORITIDE
     Indication: Hypochondroplasia
     Dosage: 423 MICROGRAM, QD
     Dates: start: 20211208

REACTIONS (2)
  - Joint noise [Not Recovered/Not Resolved]
  - Off label use [Unknown]

NARRATIVE: CASE EVENT DATE: 20250604
